FAERS Safety Report 19000179 (Version 2)
Quarter: 2021Q1

REPORT INFORMATION
  Report Type: Spontaneous
  Country: OM (occurrence: OM)
  Receive Date: 20210312
  Receipt Date: 20210318
  Transmission Date: 20210420
  Serious: Yes (Other)
  Sender: FDA-Public Use
  Company Number: OM-SA-2021SA084385

PATIENT
  Sex: Female

DRUGS (10)
  1. PARACETAMOL [Suspect]
     Active Substance: ACETAMINOPHEN
  2. CLOPIDOGREL [Concomitant]
     Active Substance: CLOPIDOGREL BISULFATE
  3. RANITIDINE. [Suspect]
     Active Substance: RANITIDINE
  4. TRAMADOL. [Suspect]
     Active Substance: TRAMADOL
  5. CARVEDILOL. [Suspect]
     Active Substance: CARVEDILOL
  6. ACETYLSALICYLIC ACID [Suspect]
     Active Substance: ASPIRIN
  7. FUROSEMIDE. [Suspect]
     Active Substance: FUROSEMIDE
  8. ATORVASTATIN [Suspect]
     Active Substance: ATORVASTATIN
  9. LISINOPRIL. [Suspect]
     Active Substance: LISINOPRIL
  10. SPIRONOLACTONE. [Suspect]
     Active Substance: SPIRONOLACTONE

REACTIONS (1)
  - Acute kidney injury [Unknown]
